FAERS Safety Report 5480056-8 (Version None)
Quarter: 2007Q4

REPORT INFORMATION
  Report Type: 
  Country: None (occurrence: None)
  Receive Date: 20071008
  Receipt Date: 20070926
  Transmission Date: 20080405
  Serious: Yes (Other)
  Sender: FDA-Public Use
  Company Number: US-PFIZER INC-2007080803

PATIENT
  Age: 70 Year
  Sex: Male

DRUGS (7)
  1. NORVASC [Suspect]
     Indication: HYPERTENSION
  2. NORVASC [Suspect]
     Indication: ANGINA PECTORIS
  3. COREG [Suspect]
     Indication: HYPERTENSION
  4. NOVOLOG [Suspect]
     Indication: DIABETES MELLITUS
  5. IRON [Concomitant]
  6. VITAMIN B [Concomitant]
  7. EPOGEN [Concomitant]

REACTIONS (14)
  - ABDOMINAL PAIN UPPER [None]
  - BLOOD GLUCOSE DECREASED [None]
  - BLOOD GLUCOSE FLUCTUATION [None]
  - CHROMATURIA [None]
  - CONSTIPATION [None]
  - DIZZINESS [None]
  - DYSPNOEA [None]
  - EPISTAXIS [None]
  - FATIGUE [None]
  - FLUSHING [None]
  - NAUSEA [None]
  - PRURITUS [None]
  - SWELLING [None]
  - VISUAL DISTURBANCE [None]
